FAERS Safety Report 5324923-4 (Version None)
Quarter: 2007Q2

REPORT INFORMATION
  Report Type: 
  Country: None (occurrence: None)
  Receive Date: 20070515
  Receipt Date: 20070506
  Transmission Date: 20071010
  Serious: Yes (Hospitalization, Other)
  Sender: FDA-Public Use
  Company Number: US-AMGEN-STX223409

PATIENT
  Sex: Female

DRUGS (1)
  1. ENBREL [Suspect]
     Indication: RHEUMATOID ARTHRITIS
     Route: 058
     Dates: start: 20000101

REACTIONS (6)
  - ARTHRALGIA [None]
  - ARTHRITIS INFECTIVE [None]
  - HIP ARTHROPLASTY [None]
  - JOINT STIFFNESS [None]
  - PYREXIA [None]
  - WHITE BLOOD CELL COUNT INCREASED [None]
